FAERS Safety Report 17040115 (Version 1)
Quarter: 2019Q4

REPORT INFORMATION
  Report Type: Spontaneous
  Country: ZA (occurrence: ZA)
  Receive Date: 20191116
  Receipt Date: 20191116
  Transmission Date: 20200122
  Serious: Yes (Life-Threatening, Hospitalization)
  Sender: FDA-Public Use
  Company Number: NVSC2019ZA037596

PATIENT
  Age: 24 Year
  Sex: Female

DRUGS (5)
  1. OLANZAPINE. [Concomitant]
     Active Substance: OLANZAPINE
     Indication: MANIA
     Dosage: 10 MG
     Route: 048
     Dates: start: 2017
  2. TEGRETOL XR [Suspect]
     Active Substance: CARBAMAZEPINE
     Indication: MANIA
     Dosage: 200 MG
     Route: 048
  3. TEGRETOL XR [Suspect]
     Active Substance: CARBAMAZEPINE
     Dosage: 200 MG, BID
     Route: 048
     Dates: start: 20191017, end: 20191025
  4. VALPROATE SODIUM. [Concomitant]
     Active Substance: VALPROATE SODIUM
     Indication: MANIA
     Dosage: 200 MG, BID
     Route: 048
     Dates: end: 20191027
  5. LITHIUM. [Concomitant]
     Active Substance: LITHIUM
     Indication: MANIA
     Dosage: 800 MG
     Route: 048
     Dates: start: 2017, end: 20191027

REACTIONS (3)
  - Enanthema [Recovered/Resolved with Sequelae]
  - Rash [Recovered/Resolved with Sequelae]
  - Hepatic function abnormal [Recovered/Resolved with Sequelae]
